FAERS Safety Report 7508519-1 (Version None)
Quarter: 2011Q2

REPORT INFORMATION
  Report Type: 
  Country: None (occurrence: None)
  Receive Date: 20110527
  Receipt Date: 20110517
  Transmission Date: 20111010
  Serious: Yes (Hospitalization)
  Sender: FDA-Public Use
  Company Number: ES-SANOFI-AVENTIS-2011SA018165

PATIENT
  Age: 74 Year
  Sex: Male

DRUGS (12)
  1. SIMVASTATIN [Concomitant]
     Route: 048
  2. MULTAQ [Suspect]
     Indication: ATRIAL FLUTTER
     Route: 048
     Dates: start: 20101001, end: 20110323
  3. ADALAT [Concomitant]
     Route: 048
  4. ATENOLOL [Concomitant]
     Route: 048
  5. CLOPIDOGREL [Concomitant]
     Route: 048
  6. ASPIRIN [Concomitant]
     Route: 048
  7. METFORMIN HCL [Concomitant]
     Route: 048
  8. RANITIDINE [Concomitant]
     Route: 048
  9. CLORAZEPATE DIPOTASSIUM [Concomitant]
     Route: 048
  10. EUTIROX [Concomitant]
  11. TEBETANE COMPUESTO [Concomitant]
     Route: 048
  12. CORONARY VASODILATORS [Concomitant]
     Route: 048

REACTIONS (9)
  - ALANINE AMINOTRANSFERASE INCREASED [None]
  - DECREASED APPETITE [None]
  - BLOOD ALKALINE PHOSPHATASE INCREASED [None]
  - NAUSEA [None]
  - ASPARTATE AMINOTRANSFERASE INCREASED [None]
  - BILIRUBIN CONJUGATED INCREASED [None]
  - GAMMA-GLUTAMYLTRANSFERASE INCREASED [None]
  - CHOLESTATIC LIVER INJURY [None]
  - WEIGHT DECREASED [None]
